FAERS Safety Report 21165929 (Version 1)
Quarter: 2022Q3

REPORT INFORMATION
  Report Type: Spontaneous
  Country: US (occurrence: None)
  Receive Date: 20220802
  Receipt Date: 20220802
  Transmission Date: 20221027
  Serious: Yes (Hospitalization)
  Sender: FDA-Public Use
  Company Number: None

PATIENT
  Sex: Female
  Weight: 68.95 kg

DRUGS (21)
  1. RETACRIT [Suspect]
     Active Substance: EPOETIN ALFA-EPBX
     Indication: Chronic kidney disease
     Dosage: OTHER STRENGTH : 40,00 UNITS/ML;?OTHER QUANTITY : 40,000 UNITS;?FREQUENCY : EVERY OTHER WEEK;?
     Route: 058
  2. AMLODIPINE [Concomitant]
     Active Substance: AMLODIPINE BESYLATE
  3. CALCIUM\VITAMIN D [Concomitant]
     Active Substance: CALCIUM\VITAMIN D
  4. CELEXA [Concomitant]
     Active Substance: CITALOPRAM HYDROBROMIDE
  5. CLONIDINE [Concomitant]
     Active Substance: CLONIDINE
  6. CYANOCOBALAMIN [Concomitant]
     Active Substance: CYANOCOBALAMIN
  7. DIGOXIN [Concomitant]
     Active Substance: DIGOXIN
  8. ERGOCALCIFEROL (P2) [Concomitant]
  9. FENOFIBRATE AND DERIVATIVES [Concomitant]
  10. GLIMEPIRIDE [Concomitant]
     Active Substance: GLIMEPIRIDE
  11. ISOSORBIDE MONONITRATE [Concomitant]
     Active Substance: ISOSORBIDE MONONITRATE
  12. LEVOTHYROXINE [Concomitant]
     Active Substance: LEVOTHYROXINE
  13. LORATADINE [Concomitant]
     Active Substance: LORATADINE
  14. METOPROLOL [Concomitant]
     Active Substance: METOPROLOL
  15. MONTELUKAST [Concomitant]
     Active Substance: MONTELUKAST SODIUM
  16. NIACIN [Concomitant]
     Active Substance: NIACIN
  17. NIACIN [Concomitant]
     Active Substance: NIACIN
  18. NOVOLOG FLEXPEN RELLON [Concomitant]
  19. OMEPRAZOLE [Concomitant]
     Active Substance: OMEPRAZOLE
  20. PROLIA [Concomitant]
     Active Substance: DENOSUMAB
  21. PROMACTA [Concomitant]
     Active Substance: ELTROMBOPAG OLAMINE

REACTIONS (1)
  - Biopsy bone marrow [None]
